FAERS Safety Report 6093045-X (Version None)
Quarter: 2009Q1

REPORT INFORMATION
  Report Type: 
  Country: None (occurrence: None)
  Receive Date: 20090224
  Receipt Date: 20090213
  Transmission Date: 20090719
  Serious: Yes (Death)
  Sender: FDA-Public Use
  Company Number: 2009US000420

PATIENT
  Age: 75 Year
  Sex: Male

DRUGS (10)
  1. AMBISOME [Suspect]
     Indication: PYREXIA
     Dosage: 50 MG, IV NOS
     Route: 042
     Dates: start: 20081230, end: 20090107
  2. TAZOCILLINE (PIPERACILLIN SODIUM, TAZOBACTAM SODIUM) [Suspect]
     Indication: DRUG USE FOR UNKNOWN INDICATION
     Dosage: TID, IV NOS
     Route: 042
     Dates: start: 20090108, end: 20090116
  3. CEFTAZIDIME PENTAHYDRATE [Suspect]
     Indication: DRUG USE FOR UNKNOWN INDICATION
     Dosage: 1 G, TID, IV NOS
     Dates: start: 20081228, end: 20090107
  4. FLAGYL [Suspect]
     Indication: DRUG USE FOR UNKNOWN INDICATION
     Dosage: 500 MG, TID, IV NOS
     Route: 042
     Dates: end: 20090111
  5. CANCIDAS(CASPOGUNGIN ACETATE) [Suspect]
     Indication: DRUG USE FOR UNKNOWN INDICATION
     Dosage: 50 MG, UID/QD, IV NOS
     Route: 042
     Dates: start: 20090108, end: 20090119
  6. NEUPOGEN [Suspect]
     Indication: DRUG USE FOR UNKNOWN INDICATION
     Dosage: 1 DF, UID/QD, IV NOS
     Route: 042
     Dates: start: 20081228
  7. INEXIUM(ESOMEPRAZOLE SODIUM) [Suspect]
     Indication: DRUG USE FOR UNKNOWN INDICATION
     Dosage: 40 MG, UID/QD, IV NOS
     Route: 042
  8. PERFALGAN(PARACETAMOL) [Suspect]
     Indication: DRUG USE FOR UNKNOWN INDICATION
     Dosage: 10 MG/ML, PRN, IV NOS
     Route: 042
  9. CALCIUM GLUCONATE [Suspect]
     Indication: DRUG USE FOR UNKNOWN INDICATION
     Dosage: 2 DF, UID/QD, IV NOS
     Route: 042
  10. OFLOCET(OFLOXACIN HYDROCHLORIDE) [Suspect]
     Indication: DRUG USE FOR UNKNOWN INDICATION
     Dosage: 200 MG, BID, IV NOS
     Route: 042
     Dates: start: 20081228, end: 20090108

REACTIONS (1)
  - CHOLESTASIS [None]
